FAERS Safety Report 19661801 (Version 1)
Quarter: 2021Q3

REPORT INFORMATION
  Report Type: Spontaneous
  Country: IT (occurrence: IT)
  Receive Date: 20210805
  Receipt Date: 20210805
  Transmission Date: 20211014
  Serious: Yes (Other)
  Sender: FDA-Public Use
  Company Number: IT-PFIZER INC-202100956323

PATIENT
  Age: 79 Year
  Sex: Female

DRUGS (4)
  1. FUROSEMIDE. [Concomitant]
     Active Substance: FUROSEMIDE
     Indication: TACHYCARDIA PAROXYSMAL
  2. CELECOXIB. [Suspect]
     Active Substance: CELECOXIB
     Indication: OSTEOARTHRITIS
  3. VERAPAMIL [Concomitant]
     Active Substance: VERAPAMIL HYDROCHLORIDE
     Indication: OSTEOARTHRITIS
  4. CELECOXIB. [Suspect]
     Active Substance: CELECOXIB
     Indication: TACHYCARDIA PAROXYSMAL
     Dosage: UNK

REACTIONS (3)
  - Oliguria [Recovered/Resolved]
  - Urinary retention [Recovered/Resolved]
  - Oedema [Recovered/Resolved]
